FAERS Safety Report 17371779 (Version 1)
Quarter: 2020Q1

REPORT INFORMATION
  Report Type: Spontaneous
  Country: US (occurrence: US)
  Receive Date: 20200205
  Receipt Date: 20200205
  Transmission Date: 20200409
  Serious: No
  Sender: FDA-Public Use
  Company Number: US-SHIRE-US202004288

PATIENT
  Age: 35 Year
  Sex: Male

DRUGS (1)
  1. ELAPRASE [Suspect]
     Active Substance: IDURSULFASE
     Indication: MUCOPOLYSACCHARIDOSIS II
     Dosage: UNKNOWN DOSAGE FORM (VIALS), 1X/WEEK
     Route: 042
     Dates: start: 20070213

REACTIONS (1)
  - Ear infection [Recovering/Resolving]

NARRATIVE: CASE EVENT DATE: 20200130
